FAERS Safety Report 11181629 (Version 1)
Quarter: 2015Q2

REPORT INFORMATION
  Report Type: Spontaneous
  Country: US (occurrence: US)
  Receive Date: 20150611
  Receipt Date: 20150611
  Transmission Date: 20150821
  Serious: No
  Sender: FDA-Public Use
  Company Number: US-ASTELLAS-2015US014583

PATIENT
  Age: 61 Year
  Sex: Male

DRUGS (1)
  1. XTANDI [Suspect]
     Active Substance: ENZALUTAMIDE
     Indication: NEOPLASM MALIGNANT
     Route: 048
     Dates: start: 20150305

REACTIONS (5)
  - Ear pain [Unknown]
  - Hair growth abnormal [Unknown]
  - Tinnitus [Unknown]
  - Vision blurred [Unknown]
  - Myalgia [Unknown]

NARRATIVE: CASE EVENT DATE: 20150413
